FAERS Safety Report 6962439-X (Version None)
Quarter: 2010Q3

REPORT INFORMATION
  Report Type: 
  Country: None (occurrence: None)
  Receive Date: 20100823
  Receipt Date: 20100715
  Transmission Date: 20110219
  Serious: No
  Sender: FDA-Public Use
  Company Number: 015765

PATIENT
  Sex: Female
  Weight: 123.8 kg

DRUGS (6)
  1. CIMZIA [Suspect]
     Indication: RHEUMATOID ARTHRITIS
     Dosage: (400 MG 1X/MONTH SUBCUTANEOUS)
     Route: 058
     Dates: start: 20100609
  2. PREDNISONE [Concomitant]
  3. FOLIC ACID [Concomitant]
  4. ZEGERID [Concomitant]
  5. LIBRAX [Concomitant]
  6. AMITRIPTYLINE HCL [Concomitant]

REACTIONS (3)
  - APHONIA [None]
  - DYSPHONIA [None]
  - INCREASED UPPER AIRWAY SECRETION [None]
